FAERS Safety Report 16864396 (Version 1)
Quarter: 2019Q3

REPORT INFORMATION
  Report Type: Spontaneous
  Country: CA (occurrence: CA)
  Receive Date: 20190928
  Receipt Date: 20190928
  Transmission Date: 20191005
  Serious: Yes (Life-Threatening, Hospitalization)
  Sender: FDA-Public Use
  Company Number: CA-ROCHE-2422860

PATIENT
  Age: 66 Year
  Sex: Female
  Weight: 98 kg

DRUGS (10)
  1. BETADERM [BETAMETHASONE VALERATE] [Concomitant]
     Route: 065
  2. ATORVASTATIN [Concomitant]
     Active Substance: ATORVASTATIN
     Route: 065
  3. BISOPROLOL [Concomitant]
     Active Substance: BISOPROLOL
     Route: 065
  4. AMLODIPINE [Concomitant]
     Active Substance: AMLODIPINE BESYLATE
     Route: 065
  5. ESCITALOPRAM [Concomitant]
     Active Substance: ESCITALOPRAM OXALATE
     Route: 065
  6. FENTANYL. [Concomitant]
     Active Substance: FENTANYL
  7. ACTEMRA [Suspect]
     Active Substance: TOCILIZUMAB
     Indication: RHEUMATOID ARTHRITIS
     Route: 058
  8. NPH [ISOPHANE INSULIN] [Concomitant]
     Active Substance: INSULIN NOS
  9. MORPHINE SULFATE. [Concomitant]
     Active Substance: MORPHINE SULFATE
  10. PANTOPRAZOLE [Concomitant]
     Active Substance: PANTOPRAZOLE

REACTIONS (5)
  - Gastrointestinal perforation [Recovering/Resolving]
  - Bacteroides test positive [Recovering/Resolving]
  - Abdominal abscess [Recovering/Resolving]
  - Septic shock [Recovering/Resolving]
  - Pelvic abscess [Recovering/Resolving]
